FAERS Safety Report 14293135 (Version 1)
Quarter: 2017Q4

REPORT INFORMATION
  Report Type: Spontaneous
  Country: FR (occurrence: FR)
  Receive Date: 20171215
  Receipt Date: 20171215
  Transmission Date: 20180321
  Serious: Yes (Disabling)
  Sender: FDA-Public Use
  Company Number: FR-BAUSCH-BL-2017-034180

PATIENT
  Age: 51 Year
  Sex: Male

DRUGS (1)
  1. MONO-TILDIEM LP [Suspect]
     Active Substance: DILTIAZEM
     Indication: HYPERTENSION
     Route: 065
     Dates: start: 2001

REACTIONS (7)
  - Ill-defined disorder [Unknown]
  - Mental disorder [Unknown]
  - Obesity [Unknown]
  - Asthenia [Unknown]
  - Gait disturbance [Unknown]
  - Tremor [Unknown]
  - Pain [Unknown]

NARRATIVE: CASE EVENT DATE: 200606
